FAERS Safety Report 7644395-4 (Version None)
Quarter: 2011Q3

REPORT INFORMATION
  Report Type: 
  Country: None (occurrence: None)
  Receive Date: 20110729
  Receipt Date: 20110722
  Transmission Date: 20111222
  Serious: Yes (Death, Hospitalization, Other)
  Sender: FDA-Public Use
  Company Number: FR-CELGENEUS-056-21880-10092263

PATIENT
  Sex: Male
  Weight: 61.4 kg

DRUGS (15)
  1. REVLIMID [Suspect]
     Dosage: 5 MILLIGRAM
     Route: 048
     Dates: start: 20100716, end: 20100816
  2. EPOGEN [Concomitant]
     Route: 065
  3. MIANSERINE [Concomitant]
     Dosage: 30 UNKNOWN
     Route: 065
     Dates: end: 20101007
  4. LASIX [Concomitant]
     Indication: PROPHYLAXIS
     Dosage: 40 MILLIGRAM
     Route: 065
     Dates: end: 20100904
  5. NAUZINAN [Concomitant]
     Dosage: 3 DROPS
     Route: 065
     Dates: end: 20101006
  6. NICARDIPINE HCL [Concomitant]
     Indication: HYPERTENSION
     Dosage: 100 UNKNOWN
     Route: 065
     Dates: end: 20101008
  7. TRAMADOL HCL [Concomitant]
     Indication: PAIN
     Dosage: 300 UNKNOWN
     Route: 065
     Dates: end: 20101008
  8. DIHYDROERGOTAMINE MESYLATE [Concomitant]
     Indication: HYPERTENSION
     Dosage: 10 UNKNOWN
     Route: 065
     Dates: end: 20100921
  9. FORLAX [Concomitant]
     Indication: CONSTIPATION
     Route: 065
     Dates: end: 20100818
  10. ALPRAZOLAM [Concomitant]
     Indication: ANXIETY
     Dosage: .75 UNKNOWN
     Route: 065
     Dates: end: 20101008
  11. ALLOPURINOL [Concomitant]
     Indication: PROPHYLAXIS
     Dosage: 200 UNKNOWN
     Route: 065
     Dates: end: 20101008
  12. CHIBROPROSCAI [Concomitant]
     Dates: end: 20101008
  13. ASPIRIN [Concomitant]
     Indication: PROPHYLAXIS
     Route: 065
     Dates: end: 20100816
  14. ALDACTONE [Concomitant]
     Indication: HYPERTENSION
     Route: 065
     Dates: end: 20100921
  15. POTASSIUM CHLORIDE [Concomitant]
     Route: 065
     Dates: end: 20100913

REACTIONS (2)
  - TOXIC SKIN ERUPTION [None]
  - SEPTIC SHOCK [None]
